FAERS Safety Report 15774881 (Version 2)
Quarter: 2019Q1

REPORT INFORMATION
  Report Type: Spontaneous
  Country: IL (occurrence: IL)
  Receive Date: 20181230
  Receipt Date: 20190115
  Transmission Date: 20190417
  Serious: Yes (Other)
  Sender: FDA-Public Use
  Company Number: IL-NOVOPROD-639490

PATIENT
  Age: 28 Year
  Sex: Female

DRUGS (4)
  1. ESTROFEM [ESTRADIOL] [Suspect]
     Active Substance: ESTRADIOL
     Indication: HORMONE THERAPY
     Dosage: 4 MG
     Route: 065
  2. CABERGOLINE. [Concomitant]
     Active Substance: CABERGOLINE
     Indication: HORMONE THERAPY
     Dosage: UNK
  3. CRINONE [Concomitant]
     Active Substance: PROGESTERONE
     Dosage: UNK
  4. ESTROFEM [ESTRADIOL] [Suspect]
     Active Substance: ESTRADIOL
     Indication: IN VITRO FERTILISATION
     Dosage: RESTARTED
     Route: 065

REACTIONS (3)
  - Psychotic disorder [Recovering/Resolving]
  - Psychotic disorder [Recovered/Resolved]
  - Off label use [Unknown]

NARRATIVE: CASE EVENT DATE: 201807
